FAERS Safety Report 4831177-1 (Version None)
Quarter: 2005Q4

REPORT INFORMATION
  Report Type: 
  Country: None (occurrence: None)
  Receive Date: 20051118
  Receipt Date: 20051104
  Transmission Date: 20060501
  Serious: Yes (Other)
  Sender: FDA-Public Use
  Company Number: US-KINGPHARMUSA00001-K200501444

PATIENT
  Age: 81 Year
  Sex: Male
  Weight: 68 kg

DRUGS (5)
  1. SKELAXIN [Suspect]
     Indication: MUSCLE RELAXANT THERAPY
     Dosage: 800 MG (1/2 TABLET), TID
     Route: 048
     Dates: start: 20050801, end: 20050801
  2. FOSAMAX [Concomitant]
     Indication: BONE DENSITY DECREASED
     Route: 048
  3. CALCIUM W/VITAMIN D NOS [Concomitant]
     Indication: BONE DENSITY DECREASED
     Dosage: 1200 MG QD
     Route: 048
  4. VITAMINS [Concomitant]
     Indication: VITAMIN SUPPLEMENTATION
     Dosage: UNK, QD
     Route: 048
  5. ASPIRIN [Concomitant]
     Dosage: 325 MG, QD
     Route: 048

REACTIONS (1)
  - SUICIDAL IDEATION [None]
